FAERS Safety Report 14450016 (Version 7)
Quarter: 2020Q1

REPORT INFORMATION
  Report Type: Report from Study
  Country: CN (occurrence: CN)
  Receive Date: 20180129
  Receipt Date: 20200221
  Transmission Date: 20200409
  Serious: Yes (Disabling)
  Sender: FDA-Public Use
  Company Number: CN-AMGEN-CHNCT2018010576

PATIENT
  Age: 24 Year
  Sex: Female
  Weight: 71 kg

DRUGS (16)
  1. BLINATUMOMAB [Suspect]
     Active Substance: BLINATUMOMAB
     Indication: ACUTE LYMPHOCYTIC LEUKAEMIA
     Dosage: 28 MICROGRAM, QD
     Route: 042
     Dates: start: 20180116
  2. CYTOSINE ARABINOSIDE [Concomitant]
     Active Substance: CYTARABINE
     Dosage: 30 MILLIGRAM
     Route: 050
     Dates: start: 20180115, end: 20180115
  3. DEXAMETHASONE. [Concomitant]
     Active Substance: DEXAMETHASONE
     Dosage: 5-18 MILLIGRAM
     Dates: start: 20180110, end: 20180123
  4. DEZOCINE [Concomitant]
     Active Substance: DEZOCINE
     Dosage: 5 MILLIGRAM
     Route: 042
     Dates: start: 20180114, end: 20180117
  5. PREDNISONE ACETATE [Concomitant]
     Active Substance: PREDNISONE ACETATE
     Dosage: 20 MILLIGRAM
     Route: 048
     Dates: start: 20180106, end: 20180110
  6. LIDOCAINE HYDROCHLORIDE. [Concomitant]
     Active Substance: LIDOCAINE HYDROCHLORIDE
     Dosage: 5 MILLIGRAM
     Route: 058
     Dates: start: 20180110, end: 20180115
  7. POTASSIUM CHLORIDE. [Concomitant]
     Active Substance: POTASSIUM CHLORIDE
     Dosage: 20 MILLILITER
     Route: 048
     Dates: start: 20180110, end: 20180111
  8. LEVOTHYROXINE SODIUM. [Concomitant]
     Active Substance: LEVOTHYROXINE SODIUM
     Dosage: 25 MICROGRAM
     Route: 048
     Dates: start: 20180115, end: 20180615
  9. PETHIDINE HYDROCHLORIDE [Concomitant]
     Active Substance: MEPERIDINE HYDROCHLORIDE
     Dosage: 50 MILLIGRAM
     Route: 030
     Dates: start: 20180117, end: 20180117
  10. OMEPRAZOLE. [Concomitant]
     Active Substance: OMEPRAZOLE
     Dosage: 40 MILLIGRAM
     Route: 048
     Dates: start: 20180106, end: 20180201
  11. ALLOPURINOL. [Concomitant]
     Active Substance: ALLOPURINOL
     Dosage: 0.1 GRAM
     Route: 048
     Dates: start: 20180110, end: 20180130
  12. METHOTREXATE. [Concomitant]
     Active Substance: METHOTREXATE
     Dosage: 10 MILLIGRAM
     Route: 050
     Dates: start: 20180115, end: 20180115
  13. GADOPENTETATE DIMEGLUMINE. [Concomitant]
     Active Substance: GADOPENTETATE DIMEGLUMINE
     Dosage: 1 UNK
     Route: 042
     Dates: start: 20180115, end: 20180115
  14. SODIUM BICARBONATE. [Concomitant]
     Active Substance: SODIUM BICARBONATE
     Dosage: 1000 MILLIGRAM
     Route: 048
     Dates: start: 20180110, end: 20180130
  15. FENTANYL. [Concomitant]
     Active Substance: FENTANYL
     Dosage: 4.2 MILLIGRAM
     Route: 062
     Dates: start: 20180117, end: 20180117
  16. MANNITOL. [Concomitant]
     Active Substance: MANNITOL
     Dosage: 125 MILLILITER
     Route: 042
     Dates: start: 20180114, end: 20180114

REACTIONS (1)
  - Hypoacusis [Recovered/Resolved]

NARRATIVE: CASE EVENT DATE: 20180120
